FAERS Safety Report 6022351-X (Version None)
Quarter: 2008Q4

REPORT INFORMATION
  Report Type: 
  Country: None (occurrence: None)
  Receive Date: 20081230
  Receipt Date: 20081219
  Transmission Date: 20090506
  Serious: Yes (Hospitalization)
  Sender: FDA-Public Use
  Company Number: NL-JNJFOC-20081206294

PATIENT
  Sex: Female

DRUGS (7)
  1. REMICADE [Suspect]
     Indication: SPONDYLITIS
     Route: 042
  2. ARCOXIA [Suspect]
     Indication: SPONDYLITIS
     Route: 048
  3. SULFASALAZINE [Concomitant]
     Route: 048
  4. FLUVOXAMINE MALEATE [Concomitant]
     Route: 048
  5. DUSPATAL [Concomitant]
  6. BUDENOFALK [Concomitant]
  7. SERETIDE DISKUS [Concomitant]
     Dosage: 50/100 MCG, 60 DAILY
     Route: 055

REACTIONS (1)
  - VASCULAR OCCLUSION [None]
